FAERS Safety Report 18502318 (Version 1)
Quarter: 2020Q4

REPORT INFORMATION
  Report Type: Other
  Country: US (occurrence: US)
  Receive Date: 20201113
  Receipt Date: 20201113
  Transmission Date: 20210114
  Serious: No
  Sender: FDA-Public Use
  Company Number: US-LEADIANT BIOSCIENCES INC-2020STPI000143

PATIENT
  Sex: Male

DRUGS (18)
  1. REGLAN [Concomitant]
     Active Substance: METOCLOPRAMIDE HYDROCHLORIDE
  2. MORPHINE SULPHATE [Concomitant]
     Active Substance: MORPHINE SULFATE
  3. MYLANTA [Concomitant]
     Active Substance: ALUMINUM HYDROXIDE\DIMETHICONE\MAGNESIUM HYDROXIDE
  4. FAMOTIDINE. [Concomitant]
     Active Substance: FAMOTIDINE
  5. MYFORTIC [Concomitant]
     Active Substance: MYCOPHENOLATE SODIUM
  6. MELATONIN [Concomitant]
     Active Substance: MELATONIN
  7. SULFACET [SULFACETAMIDE SODIUM] [Concomitant]
  8. ATIVAN [Concomitant]
     Active Substance: LORAZEPAM
  9. PROCYSBI [Concomitant]
     Active Substance: CYSTEAMINE BITARTRATE
  10. ACETAMINOPHEN. [Concomitant]
     Active Substance: ACETAMINOPHEN
  11. PREDNISONE. [Concomitant]
     Active Substance: PREDNISONE
  12. TACROLIMUS. [Concomitant]
     Active Substance: TACROLIMUS
  13. NORCO [Concomitant]
     Active Substance: ACETAMINOPHEN\HYDROCODONE BITARTRATE
  14. OMEPRAZOLE. [Concomitant]
     Active Substance: OMEPRAZOLE
  15. SYNTHROID [Concomitant]
     Active Substance: LEVOTHYROXINE SODIUM
  16. CYSTARAN [Suspect]
     Active Substance: CYSTEAMINE HYDROCHLORIDE
     Indication: CYSTINOSIS
     Dosage: ONE DROP INTO EACH EYE, 5-6 TIMES PER DAY
     Route: 047
     Dates: start: 20150903
  17. ATENOLOL. [Concomitant]
     Active Substance: ATENOLOL
  18. TOBRAMYCIN. [Concomitant]
     Active Substance: TOBRAMYCIN

REACTIONS (1)
  - Product dose omission issue [Unknown]
